FAERS Safety Report 9240351 (Version 1)
Quarter: 2013Q2

REPORT INFORMATION
  Report Type: Spontaneous
  Country: US (occurrence: None)
  Receive Date: 20130418
  Receipt Date: 20130418
  Transmission Date: 20140414
  Serious: Yes (Hospitalization)
  Sender: FDA-Public Use
  Company Number: None

PATIENT
  Age: 56 Year
  Sex: Male
  Weight: 90.9 kg

DRUGS (1)
  1. VORICONAZOLE [Suspect]
     Dosage: 550
     Route: 048
     Dates: start: 20121016, end: 20121106

REACTIONS (2)
  - Drug-induced liver injury [None]
  - Drug intolerance [None]
